FAERS Safety Report 9351711 (Version 2)
Quarter: 2013Q2

REPORT INFORMATION
  Report Type: Spontaneous
  Country: JP (occurrence: None)
  Receive Date: 20130612
  Receipt Date: 20130621
  Transmission Date: 20140414
  Serious: Yes (Hospitalization)
  Sender: FDA-Public Use
  Company Number: ENT 2013-0096

PATIENT
  Sex: Female

DRUGS (4)
  1. COMTAN [Suspect]
     Indication: PARKINSON^S DISEASE
     Route: 048
     Dates: start: 20130522, end: 20130524
  2. SYMMETREL [Concomitant]
  3. MENESIT [Concomitant]
  4. REQUIP [Concomitant]

REACTIONS (8)
  - Wrong technique in drug usage process [None]
  - Sputum retention [None]
  - Dysphagia [None]
  - Akinesia [None]
  - Bedridden [None]
  - Speech disorder [None]
  - Parkinson^s disease [None]
  - Condition aggravated [None]
